FAERS Safety Report 13708670 (Version 1)
Quarter: 2017Q2

REPORT INFORMATION
  Report Type: Report from Study
  Country: US (occurrence: US)
  Receive Date: 20170630
  Receipt Date: 20170630
  Transmission Date: 20170830
  Serious: Yes (Other)
  Sender: FDA-Public Use
  Company Number: US-IPSEN BIOPHARMACEUTICALS, INC.-2015-09178

PATIENT
  Age: 55 Year
  Sex: Male
  Weight: 108 kg

DRUGS (7)
  1. JEVTANA [Suspect]
     Active Substance: CABAZITAXEL
     Dates: start: 201512
  2. PREDNISONE. [Concomitant]
     Active Substance: PREDNISONE
     Indication: PRODUCT USED FOR UNKNOWN INDICATION
  3. SOMATULINE DEPOT [Suspect]
     Active Substance: LANREOTIDE ACETATE
     Indication: PROSTATE CANCER METASTATIC
     Dosage: NOT REPORTED
     Route: 065
     Dates: start: 20151201
  4. JEVTANA [Suspect]
     Active Substance: CABAZITAXEL
     Indication: PRODUCT USED FOR UNKNOWN INDICATION
     Dates: end: 2015
  5. METFORMIN [Concomitant]
     Active Substance: METFORMIN HYDROCHLORIDE
  6. XTANDI [Concomitant]
     Active Substance: ENZALUTAMIDE
  7. SOMATULINE DEPOT [Suspect]
     Active Substance: LANREOTIDE ACETATE
     Indication: PRODUCT USE IN UNAPPROVED INDICATION

REACTIONS (3)
  - Diarrhoea [Recovering/Resolving]
  - Disease progression [Not Recovered/Not Resolved]
  - Feeling abnormal [Not Recovered/Not Resolved]

NARRATIVE: CASE EVENT DATE: 201512
